FAERS Safety Report 16072981 (Version 2)
Quarter: 2019Q1

REPORT INFORMATION
  Report Type: Spontaneous
  Country: PT (occurrence: PT)
  Receive Date: 20190314
  Receipt Date: 20190330
  Transmission Date: 20190418
  Serious: Yes (Disabling, Other)
  Sender: FDA-Public Use
  Company Number: PHHY2019PT040049

PATIENT
  Age: 61 Year
  Sex: Female

DRUGS (2)
  1. PROPOFOL. [Concomitant]
     Active Substance: PROPOFOL
     Indication: PRODUCT USED FOR UNKNOWN INDICATION
     Dosage: UNK
     Route: 065
  2. OLANZAPINE. [Suspect]
     Active Substance: OLANZAPINE
     Indication: PRODUCT USED FOR UNKNOWN INDICATION
     Dosage: UNK
     Route: 065

REACTIONS (8)
  - Dystonia [Recovering/Resolving]
  - Musculoskeletal stiffness [Recovered/Resolved]
  - Feeding disorder [Recovering/Resolving]
  - Akathisia [Recovering/Resolving]
  - Scoliosis [Unknown]
  - Kyphosis [Unknown]
  - Torticollis [Recovering/Resolving]
  - Posture abnormal [Recovering/Resolving]
